FAERS Safety Report 7552835-4 (Version None)
Quarter: 2011Q2

REPORT INFORMATION
  Report Type: 
  Country: None (occurrence: None)
  Receive Date: 20110616
  Receipt Date: 20110610
  Transmission Date: 20111010
  Serious: Yes (Death, Hospitalization)
  Sender: FDA-Public Use
  Company Number: ES-PFIZER INC-2011019241

PATIENT
  Age: 49 Year
  Sex: Female

DRUGS (12)
  1. VORICONAZOLE [Suspect]
  2. TIGECYCLINE [Suspect]
  3. MEROPENEM [Suspect]
  4. METOCLOPRAMIDE [Suspect]
  5. INSULIN [Suspect]
  6. MAGNESIUM SULFATE [Suspect]
  7. METHYLPREDNISOLONE SODIUM SUCCINATE [Suspect]
  8. NOREPINEPHRINE BITARTRATE [Suspect]
  9. MIDAZOLAM HCL [Suspect]
  10. DOBUTAMINE HCL [Suspect]
  11. REMIFENTANIL [Suspect]
  12. OMEPRAZOLE [Suspect]

REACTIONS (3)
  - CARDIOGENIC SHOCK [None]
  - MULTI-ORGAN FAILURE [None]
  - MYOCARDIAL INFARCTION [None]
